FAERS Safety Report 11467049 (Version 2)
Quarter: 2015Q3

REPORT INFORMATION
  Report Type: Other
  Country: GB (occurrence: GB)
  Receive Date: 20150908
  Receipt Date: 20150921
  Transmission Date: 20151125
  Serious: Yes (Other)
  Sender: FDA-Public Use
  Company Number: GB-TAKEDA-2015TJP016789

PATIENT
  Age: 61 Year
  Sex: Female
  Weight: 66 kg

DRUGS (5)
  1. CISPLATIN. [Suspect]
     Active Substance: CISPLATIN
     Indication: GASTRIC CANCER
     Dosage: 100 MG, Q3WEEKS
     Route: 042
     Dates: start: 20130502
  2. LANSOPRAZOLE. [Suspect]
     Active Substance: LANSOPRAZOLE
     Indication: PRODUCT USED FOR UNKNOWN INDICATION
     Dosage: 20 MG, UNK
     Route: 048
  3. XELODA [Suspect]
     Active Substance: CAPECITABINE
     Indication: GASTRIC CANCER
     Dosage: 2 DF, Q3WEEKS
     Route: 048
     Dates: start: 20130502
  4. EPIRUBICIN HCL [Suspect]
     Active Substance: EPIRUBICIN HYDROCHLORIDE
     Indication: GASTRIC CANCER
     Dosage: 88 MG, Q3WEEKS
     Route: 042
     Dates: start: 20130502
  5. AVASTIN [Suspect]
     Active Substance: BEVACIZUMAB
     Indication: GASTRIC CANCER
     Dosage: 492 MG, Q3WEEKS
     Route: 042
     Dates: start: 20130502

REACTIONS (1)
  - Axillary vein thrombosis [Not Recovered/Not Resolved]
